FAERS Safety Report 19308799 (Version 4)
Quarter: 2021Q3

REPORT INFORMATION
  Report Type: Spontaneous
  Country: US (occurrence: US)
  Receive Date: 20210525
  Receipt Date: 20210817
  Transmission Date: 20211014
  Serious: No
  Sender: FDA-Public Use
  Company Number: US-INCYTE CORPORATION-2021IN004518

PATIENT

DRUGS (6)
  1. THC [Suspect]
     Active Substance: DRONABINOL
     Indication: PRODUCT USED FOR UNKNOWN INDICATION
     Route: 065
  2. JAKAFI [Suspect]
     Active Substance: RUXOLITINIB
     Indication: ESSENTIAL THROMBOCYTHAEMIA
     Dosage: 5 MILLIGRAM, BID
     Route: 048
     Dates: start: 20210503
  3. JAKAFI [Suspect]
     Active Substance: RUXOLITINIB
     Dosage: 15 MILLIGRAM, QD
     Route: 048
     Dates: start: 202104
  4. CBD COMPLEX (CANNABIS SATIVA) [Suspect]
     Active Substance: CANNABIS SATIVA FLOWERING TOP
     Indication: PRODUCT USED FOR UNKNOWN INDICATION
     Route: 065
  5. JAKAFI [Suspect]
     Active Substance: RUXOLITINIB
     Indication: MYELOPROLIFERATIVE NEOPLASM
     Dosage: 5 MILLIGRAM, BID
     Route: 048
     Dates: start: 20210503
  6. JAKAFI [Suspect]
     Active Substance: RUXOLITINIB
     Dosage: 10MG 2 TABLETS IN THE AM, 1 TABLET IN THE PM (15 MG TOTAL PER DAY)
     Route: 048

REACTIONS (18)
  - Hepatomegaly [Unknown]
  - Dehydration [Unknown]
  - Malaise [Unknown]
  - Product dose omission in error [Unknown]
  - Abnormal dreams [Unknown]
  - Euphoric mood [Unknown]
  - Sleep disorder [Unknown]
  - Product solubility abnormal [Unknown]
  - Fatigue [Unknown]
  - Hepatic function abnormal [Unknown]
  - Blood sodium increased [Unknown]
  - Energy increased [Unknown]
  - Dysphagia [Unknown]
  - Insomnia [Unknown]
  - Vitamin D decreased [Unknown]
  - Pain [Unknown]
  - Blood sodium decreased [Unknown]
  - Off label use [Unknown]
